FAERS Safety Report 8396097-7 (Version None)
Quarter: 2012Q1

REPORT INFORMATION
  Report Type: 
  Country: None (occurrence: None)
  Receive Date: 20120323
  Receipt Date: 20111222
  Transmission Date: 20120608
  Serious: Yes (Other)
  Sender: FDA-Public Use
  Company Number: 163-21880-11123262

PATIENT
  Sex: Female

DRUGS (4)
  1. REVLIMID [Suspect]
     Indication: MULTIPLE MYELOMA
     Dosage: 15 MG, 1 IN 1 D, PO, 15 MG, DAILY X 14 DAYS, PO, 5MG-10MG-15MG-20MG, DAILY, PO, 10 MG, 1 IN 1 D, PO
     Route: 048
     Dates: start: 20061001
  2. REVLIMID [Suspect]
     Indication: MULTIPLE MYELOMA
     Dosage: 15 MG, 1 IN 1 D, PO, 15 MG, DAILY X 14 DAYS, PO, 5MG-10MG-15MG-20MG, DAILY, PO, 10 MG, 1 IN 1 D, PO
     Route: 048
     Dates: start: 20111001
  3. REVLIMID [Suspect]
     Indication: MULTIPLE MYELOMA
     Dosage: 15 MG, 1 IN 1 D, PO, 15 MG, DAILY X 14 DAYS, PO, 5MG-10MG-15MG-20MG, DAILY, PO, 10 MG, 1 IN 1 D, PO
     Route: 048
     Dates: start: 20061201
  4. REVLIMID [Suspect]
     Indication: MULTIPLE MYELOMA
     Dosage: 15 MG, 1 IN 1 D, PO, 15 MG, DAILY X 14 DAYS, PO, 5MG-10MG-15MG-20MG, DAILY, PO, 10 MG, 1 IN 1 D, PO
     Route: 048
     Dates: start: 20070101

REACTIONS (1)
  - HYPERSENSITIVITY [None]
